FAERS Safety Report 23177706 (Version 1)
Quarter: 2023Q4

REPORT INFORMATION
  Report Type: Spontaneous
  Country: US (occurrence: None)
  Receive Date: 20231113
  Receipt Date: 20231113
  Transmission Date: 20240110
  Serious: Yes (Other)
  Sender: FDA-Public Use
  Company Number: None

PATIENT
  Sex: Male

DRUGS (11)
  1. ENBREL [Suspect]
     Active Substance: ETANERCEPT
  2. ASPIRIN CHW [Concomitant]
  3. ATORVASTATIN [Concomitant]
     Active Substance: ATORVASTATIN
  4. CELEBREX [Concomitant]
     Active Substance: CELECOXIB
  5. FOLIC ACID TAB [Concomitant]
  6. IRON TAB [Concomitant]
  7. METHOTREXATE [Concomitant]
  8. NEXIUM CAP [Concomitant]
  9. NIACINAMIDE [Concomitant]
     Active Substance: NIACINAMIDE
  10. VITAMIN C [Concomitant]
     Active Substance: ASCORBIC ACID
  11. VITAMIN D3 [Concomitant]

REACTIONS (2)
  - Surgery [None]
  - Therapy interrupted [None]
